FAERS Safety Report 5819822-5 (Version None)
Quarter: 2008Q3

REPORT INFORMATION
  Report Type: 
  Country: None (occurrence: None)
  Receive Date: 20080723
  Receipt Date: 20080716
  Transmission Date: 20090109
  Serious: Yes (Other)
  Sender: FDA-Public Use
  Company Number: US-PFIZER INC-2008059532

PATIENT
  Sex: Female
  Weight: 84.545 kg

DRUGS (3)
  1. LIPITOR [Suspect]
     Indication: BLOOD CHOLESTEROL
  2. PREVACID [Concomitant]
  3. SYNTHROID [Concomitant]

REACTIONS (5)
  - ARTERIAL OCCLUSIVE DISEASE [None]
  - EXPIRED DRUG ADMINISTERED [None]
  - FALL [None]
  - KNEE OPERATION [None]
  - WEIGHT INCREASED [None]
